FAERS Safety Report 7262649-0 (Version None)
Quarter: 2011Q1

REPORT INFORMATION
  Report Type: 
  Country: None (occurrence: None)
  Receive Date: 20110130
  Receipt Date: 20100908
  Transmission Date: 20110831
  Serious: No
  Sender: FDA-Public Use
  Company Number: US-ABBOTT-10P-163-0670577-00

PATIENT
  Sex: Female

DRUGS (1)
  1. HUMIRA [Suspect]
     Indication: CROHN'S DISEASE
     Dates: start: 20070101

REACTIONS (6)
  - INJECTION SITE HAEMORRHAGE [None]
  - DIARRHOEA [None]
  - INJECTION SITE HAEMATOMA [None]
  - CLOSTRIDIAL INFECTION [None]
  - ABNORMAL FAECES [None]
  - DEVICE MALFUNCTION [None]
